FAERS Safety Report 6130183-7 (Version None)
Quarter: 2009Q1

REPORT INFORMATION
  Report Type: 
  Country: None (occurrence: None)
  Receive Date: 20090324
  Receipt Date: 20090316
  Transmission Date: 20090719
  Serious: Yes (Other)
  Sender: FDA-Public Use
  Company Number: US-ALLERGAN-0903571US

PATIENT
  Sex: Female

DRUGS (7)
  1. RESTASIS [Suspect]
     Indication: DRY EYE
     Dosage: UNK, UNK
     Route: 047
     Dates: start: 20090228
  2. ALPHAGAN P [Suspect]
     Indication: GLAUCOMA
     Dosage: UNK, BID
     Route: 047
  3. GLIPIZIDE [Concomitant]
     Dosage: 5 MG, QD
  4. LISINTRIL [Concomitant]
     Dosage: 10 MG, QD
  5. TRIAMTEREEN/HYDROCHLOOTTHIAZIDE [Concomitant]
     Dosage: UNK, QD
  6. GABAPENTIN [Concomitant]
     Dosage: 300 MG, TID
  7. COLAZAL [Concomitant]
     Dosage: 750 MG, TID

REACTIONS (3)
  - EYE SWELLING [None]
  - PRURITUS GENERALISED [None]
  - SWELLING FACE [None]
